FAERS Safety Report 6220902-3 (Version None)
Quarter: 2009Q2

REPORT INFORMATION
  Report Type: 
  Country: None (occurrence: None)
  Receive Date: 20090610
  Receipt Date: 20090529
  Transmission Date: 20091009
  Serious: Yes (Death, Hospitalization)
  Sender: FDA-Public Use
  Company Number: FR-PFIZER INC-2009220001

PATIENT
  Age: 86 Year

DRUGS (4)
  1. DALACINE [Suspect]
     Indication: OSTEOMYELITIS
     Dosage: UNK
     Route: 048
     Dates: start: 20090415, end: 20090425
  2. RIFADIN [Suspect]
     Indication: OSTEOMYELITIS
     Dosage: 600 MG, 2X/DAY
     Route: 048
     Dates: start: 20090415, end: 20090425
  3. VANCOMYCIN [Concomitant]
     Dosage: UNK
     Dates: start: 20090404, end: 20090414
  4. GENTAMYCIN SULFATE [Concomitant]
     Indication: STAPHYLOCOCCAL INFECTION
     Dosage: UNK
     Dates: start: 20090404, end: 20090407

REACTIONS (7)
  - C-REACTIVE PROTEIN INCREASED [None]
  - DECUBITUS ULCER [None]
  - DRUG HYPERSENSITIVITY [None]
  - EOSINOPHILIA [None]
  - FACE OEDEMA [None]
  - PYREXIA [None]
  - RASH MACULO-PAPULAR [None]
